FAERS Safety Report 17065092 (Version 1)
Quarter: 2019Q4

REPORT INFORMATION
  Report Type: Spontaneous
  Country: US (occurrence: US)
  Receive Date: 20191122
  Receipt Date: 20191122
  Transmission Date: 20200122
  Serious: Yes (Hospitalization)
  Sender: FDA-Public Use
  Company Number: None

PATIENT
  Age: 55 Year
  Sex: Female

DRUGS (5)
  1. ESTRADIOL TAB 1 MG [Concomitant]
  2. HUMIRA [Suspect]
     Active Substance: ADALIMUMAB
     Indication: RHEUMATOID ARTHRITIS
     Dosage: ?          OTHER FREQUENCY:EVERY 2 WEEKS;?
     Route: 058
     Dates: start: 20180102
  3. SOTALOL AF TAB 120 MG [Concomitant]
  4. LOSARTAN POT TAB 50 MG [Concomitant]
  5. EZETIMBE TAB 10 MG [Concomitant]

REACTIONS (6)
  - External nose lesion excision [None]
  - Lip lesion excision [None]
  - Therapy cessation [None]
  - Skin lesion [None]
  - Staphylococcal infection [None]
  - Rheumatoid arthritis [None]
